FAERS Safety Report 10187140 (Version 3)
Quarter: 2014Q4

REPORT INFORMATION
  Report Type: Spontaneous
  Country: US (occurrence: US)
  Receive Date: 20140522
  Receipt Date: 20141013
  Transmission Date: 20150528
  Serious: Yes (Other)
  Sender: FDA-Public Use
  Company Number: US-TEVA-483010USA

PATIENT
  Age: 50 Year
  Sex: Female

DRUGS (2)
  1. NORTRIPTYLINE [Suspect]
     Active Substance: NORTRIPTYLINE
     Indication: FIBROMYALGIA
     Dosage: 25 MILLIGRAM DAILY; AT BEDTIME, INCREASE PER TITRATING SCHEDULE TO MAX DOSE OF 100MG DAILY
     Dates: start: 201306, end: 201306
  2. NORTRIPTYLINE [Suspect]
     Active Substance: NORTRIPTYLINE
     Dates: start: 2013, end: 2013

REACTIONS (9)
  - Depressed mood [Unknown]
  - Headache [Unknown]
  - Optic neuritis [Recovered/Resolved]
  - Ocular discomfort [Unknown]
  - Blindness unilateral [Recovered/Resolved]
  - Impaired driving ability [Unknown]
  - Activities of daily living impaired [Unknown]
  - Balance disorder [Unknown]
  - Anxiety [Unknown]

NARRATIVE: CASE EVENT DATE: 20130603
